FAERS Safety Report 7759764-1 (Version None)
Quarter: 2011Q3

REPORT INFORMATION
  Report Type: 
  Country: None (occurrence: None)
  Receive Date: 20110919
  Receipt Date: 20110909
  Transmission Date: 20111222
  Serious: Yes (Hospitalization)
  Sender: FDA-Public Use
  Company Number: PHHY2011ES80509

PATIENT
  Age: 64 Year
  Sex: Male

DRUGS (4)
  1. ASPIRIN [Concomitant]
     Dosage: UNK
  2. AMOXICILLIN [Suspect]
     Route: 048
  3. BRONCHODILATORS [Concomitant]
  4. FENITOINE [Concomitant]

REACTIONS (13)
  - CHEST PAIN [None]
  - RASH [None]
  - VOMITING [None]
  - ANAPHYLACTIC SHOCK [None]
  - WHEEZING [None]
  - TACHYPNOEA [None]
  - AKINESIA [None]
  - KOUNIS SYNDROME [None]
  - URTICARIA [None]
  - DYSPNOEA [None]
  - GENERALISED ERYTHEMA [None]
  - NAUSEA [None]
  - THROMBOSIS [None]
